FAERS Safety Report 8956618 (Version 2)
Quarter: 2012Q4

REPORT INFORMATION
  Report Type: 
  Country: BR (occurrence: BR)
  Receive Date: 20121210
  Receipt Date: 20121212
  Transmission Date: 20130627
  Serious: Yes (Other)
  Sender: FDA-Public Use
  Company Number: BR-PFIZER INC-2012305980

PATIENT
  Age: 62 Year
  Sex: Male

DRUGS (5)
  1. XALATAN [Suspect]
     Indication: GLAUCOMA
     Dosage: 1x/day (one drop each eye, once a day)
     Route: 047
  2. SERETIDE [Concomitant]
     Indication: BRONCHITIS
     Dosage: UNK
  3. WARFARIN SODIUM [Concomitant]
     Indication: ANTICOAGULANT THERAPY
     Dosage: UNK
  4. VERAPAMIL [Concomitant]
     Indication: HEART DISORDER
     Dosage: UNK
  5. GLYCEROL [Concomitant]
     Indication: DIABETES
     Dosage: UNK

REACTIONS (1)
  - Bronchitis [Unknown]
